FAERS Safety Report 9470880 (Version 1)
Quarter: 2013Q3

REPORT INFORMATION
  Report Type: Spontaneous
  Country: US (occurrence: US)
  Receive Date: 20130822
  Receipt Date: 20130822
  Transmission Date: 20140515
  Serious: No
  Sender: FDA-Public Use
  Company Number: US-PFIZER INC-2013240212

PATIENT
  Age: 63 Year
  Sex: Male

DRUGS (2)
  1. INLYTA [Suspect]
     Indication: HEPATIC CANCER
     Dosage: 1 MG, (3 TABLETS EVERY 12 HOURS)
     Route: 048
     Dates: start: 201304
  2. HYDROCODONE [Concomitant]
     Dosage: UNK, AS NEEDED

REACTIONS (2)
  - Scar pain [Unknown]
  - Scar [Unknown]
